FAERS Safety Report 5464956-0 (Version None)
Quarter: 2007Q3

REPORT INFORMATION
  Report Type: 
  Country: None (occurrence: None)
  Receive Date: 20070921
  Receipt Date: 20070913
  Transmission Date: 20080115
  Serious: Yes (Hospitalization)
  Sender: FDA-Public Use
  Company Number: FR-PFIZER INC-2007077571

PATIENT
  Sex: Male

DRUGS (18)
  1. TAHOR [Suspect]
     Route: 048
  2. OMEPRAZOLE [Suspect]
     Route: 048
  3. PREVISCAN [Suspect]
     Route: 048
     Dates: start: 20050201, end: 20070724
  4. CIFLOX [Suspect]
     Route: 048
     Dates: start: 20070724, end: 20070728
  5. ROCEPHIN [Suspect]
     Dosage: TEXT:1G/10ML-FREQ:DAILY
     Route: 042
     Dates: start: 20070722, end: 20070730
  6. AMIODARONE HCL [Suspect]
     Route: 048
  7. ALLOPURINOL [Concomitant]
     Dosage: DAILY DOSE:200MG
     Route: 048
  8. KARDEGIC [Concomitant]
     Route: 048
  9. LEVOTHYROXINE SODIUM [Concomitant]
     Route: 048
  10. ATENOLOL [Concomitant]
  11. BUMETANIDE [Concomitant]
  12. MYCOPHENOLATE MOFETIL [Concomitant]
  13. HYPERIUM [Concomitant]
  14. METFORMIN [Concomitant]
  15. MOLSIDOMINE [Concomitant]
  16. MOVICOL [Concomitant]
  17. NEORAL [Concomitant]
  18. INSULIN GLARGINE [Concomitant]

REACTIONS (2)
  - ANAEMIA [None]
  - PERITONEAL HAEMORRHAGE [None]
